FAERS Safety Report 18383691 (Version 3)
Quarter: 2020Q4

REPORT INFORMATION
  Report Type: Spontaneous
  Country: CA (occurrence: CA)
  Receive Date: 20201014
  Receipt Date: 20201222
  Transmission Date: 20210114
  Serious: Yes (Hospitalization, Other)
  Sender: FDA-Public Use
  Company Number: CA-PFIZER INC-2020396579

PATIENT
  Age: 84 Year
  Sex: Male

DRUGS (2)
  1. SULFASALAZINE. [Suspect]
     Active Substance: SULFASALAZINE
     Dosage: 1 G, 2X/DAY
     Route: 048
  2. HCQ [Concomitant]
     Active Substance: HYDROXYCHLOROQUINE SULFATE
     Dosage: 200 MG, DAILY
     Route: 048

REACTIONS (7)
  - Arteriosclerosis [Unknown]
  - Infection [Unknown]
  - Rheumatoid arthritis [Recovering/Resolving]
  - Dyspnoea [Unknown]
  - Mobility decreased [Unknown]
  - Polyneuropathy [Recovered/Resolved]
  - C-reactive protein increased [Unknown]
